FAERS Safety Report 7065112-5 (Version None)
Quarter: 2010Q4

REPORT INFORMATION
  Report Type: 
  Country: None (occurrence: None)
  Receive Date: 20101027
  Receipt Date: 19930617
  Transmission Date: 20110411
  Serious: Yes (Death)
  Sender: FDA-Public Use
  Company Number: US-ROCHE-930201107001

PATIENT
  Age: 81 Year
  Sex: Male
  Weight: 44 kg

DRUGS (9)
  1. VERSED [Suspect]
     Route: 030
     Dates: start: 19930129, end: 19930129
  2. DEMEROL [Suspect]
     Route: 030
     Dates: start: 19930129, end: 19930129
  3. ATENOLOL [Concomitant]
     Route: 065
  4. MULTI-VITAMINS [Concomitant]
     Route: 065
  5. RANITIDINE [Concomitant]
     Route: 065
  6. GENTAMICIN [Concomitant]
     Route: 065
  7. CODEINE PHOSPHATE AND ACETAMINOPHEN [Concomitant]
     Route: 065
  8. HEPARIN [Concomitant]
     Route: 065
  9. LACTULOSE [Concomitant]
     Route: 065

REACTIONS (4)
  - CARDIAC ARREST [None]
  - HYPOTENSION [None]
  - RESPIRATORY DISTRESS [None]
  - TACHYCARDIA [None]
